FAERS Safety Report 5010878-9 (Version None)
Quarter: 2006Q2

REPORT INFORMATION
  Report Type: 
  Country: None (occurrence: None)
  Receive Date: 20060525
  Receipt Date: 20060519
  Transmission Date: 20061013
  Serious: Yes (Other)
  Sender: FDA-Public Use
  Company Number: SE-GLAXOSMITHKLINE-B0425122A

PATIENT
  Sex: Female

DRUGS (1)
  1. LAMICTAL [Suspect]
     Indication: DEPRESSION

REACTIONS (5)
  - HEADACHE [None]
  - MUCOSAL HAEMORRHAGE [None]
  - NAUSEA [None]
  - NECK PAIN [None]
  - URTICARIA [None]
